FAERS Safety Report 18623383 (Version 2)
Quarter: 2021Q1

REPORT INFORMATION
  Report Type: Spontaneous
  Country: US (occurrence: US)
  Receive Date: 20201216
  Receipt Date: 20210209
  Transmission Date: 20210419
  Serious: No
  Sender: FDA-Public Use
  Company Number: US-BRISTOL-MYERS SQUIBB COMPANY-BMS-2020-107422

PATIENT
  Sex: Female

DRUGS (2)
  1. SPRYCEL [Suspect]
     Active Substance: DASATINIB
     Indication: CHRONIC MYELOID LEUKAEMIA
     Dosage: 20 MILLIGRAM, QD
     Route: 048
     Dates: start: 20190904
  2. SPRYCEL [Suspect]
     Active Substance: DASATINIB
     Dosage: 60 MILLIGRAM, QD
     Route: 048
     Dates: start: 20190904

REACTIONS (1)
  - Nausea [Unknown]
